FAERS Safety Report 7528234-8 (Version None)
Quarter: 2011Q2

REPORT INFORMATION
  Report Type: 
  Country: None (occurrence: None)
  Receive Date: 20110607
  Receipt Date: 20100817
  Transmission Date: 20111010
  Serious: No
  Sender: FDA-Public Use
  Company Number: US-ASTRAZENECA-2010SE39203

PATIENT
  Sex: Male

DRUGS (6)
  1. PRILOSEC [Suspect]
     Route: 048
  2. BLOOD PRESSURE MEDICATION [Concomitant]
  3. SPIRIVA [Concomitant]
  4. PRILOSEC OTC [Suspect]
     Route: 048
  5. SYNTHROID [Concomitant]
  6. ADVAIR DISKUS 100/50 [Concomitant]

REACTIONS (2)
  - HERNIA PAIN [None]
  - INCORRECT DRUG ADMINISTRATION DURATION [None]
